FAERS Safety Report 14967308 (Version 1)
Quarter: 2018Q2

REPORT INFORMATION
  Report Type: Spontaneous
  Country: JP (occurrence: JP)
  Receive Date: 20180604
  Receipt Date: 20180604
  Transmission Date: 20180711
  Serious: No
  Sender: FDA-Public Use
  Company Number: JP-CHEPLA-C20170503

PATIENT
  Age: 73 Year
  Sex: Male

DRUGS (2)
  1. LIPIDIL [Concomitant]
     Active Substance: FENOFIBRATE
     Dosage: 80 MG ONCE A DAY
  2. VESANOID [Suspect]
     Active Substance: TRETINOIN
     Indication: PRODUCT USED FOR UNKNOWN INDICATION
     Dosage: 7 CAPSULES (10 MG EACH) DIVIDED IN 3 DOSES DAILY
     Route: 048
     Dates: start: 20170615, end: 20170731

REACTIONS (1)
  - Hypertriglyceridaemia [Recovered/Resolved]

NARRATIVE: CASE EVENT DATE: 20170731
